FAERS Safety Report 6547006-4 (Version None)
Quarter: 2010Q1

REPORT INFORMATION
  Report Type: 
  Country: None (occurrence: None)
  Receive Date: 20100122
  Receipt Date: 20100114
  Transmission Date: 20100710
  Serious: Yes (Hospitalization)
  Sender: FDA-Public Use
  Company Number: B0625933A

PATIENT
  Age: 63 Year
  Sex: Female

DRUGS (5)
  1. PAROXETINE HCL [Suspect]
     Indication: DEPRESSION
     Route: 048
     Dates: start: 20091221, end: 20100101
  2. ZOPICLONE [Concomitant]
     Dosage: 7.5MG PER DAY
  3. METRONIDAZOLE [Concomitant]
     Dosage: 1200MG PER DAY
  4. FUROSEMIDE [Concomitant]
     Dosage: 20MG PER DAY
  5. ERYTHROMYCIN [Concomitant]

REACTIONS (2)
  - HYPOMANIA [None]
  - OEDEMA [None]
